FAERS Safety Report 24378442 (Version 1)
Quarter: 2024Q3

REPORT INFORMATION
  Report Type: Spontaneous
  Country: US (occurrence: None)
  Receive Date: 20240927
  Receipt Date: 20240927
  Transmission Date: 20241017
  Serious: Yes (Life-Threatening, Hospitalization, Disabling, Other)
  Sender: Public
  Company Number: None

PATIENT
  Age: 67 Year
  Sex: Female
  Weight: 83.91 kg

DRUGS (7)
  1. MACROBID [Suspect]
     Active Substance: NITROFURANTOIN\NITROFURANTOIN MONOHYDRATE
     Dosage: 1 TABLET ONCE A DAY TAKEN BY MOUTH
     Dates: start: 20240216, end: 20240225
  2. SERTRALINE [Concomitant]
     Active Substance: SERTRALINE HYDROCHLORIDE
  3. AMLODIPINE [Concomitant]
     Active Substance: AMLODIPINE BESYLATE
  4. ATORVASTATIN [Concomitant]
     Active Substance: ATORVASTATIN
  5. TRAZODONE [Concomitant]
     Active Substance: TRAZODONE HYDROCHLORIDE
  6. ASPIRIN [Concomitant]
     Active Substance: ASPIRIN
  7. VITAMIN D [Concomitant]
     Active Substance: VITAMIN D NOS

REACTIONS (14)
  - Loss of consciousness [None]
  - Hypersensitivity [None]
  - Confusional state [None]
  - Paraesthesia [None]
  - Hypoaesthesia [None]
  - Dyspnoea [None]
  - Thrombotic thrombocytopenic purpura [None]
  - Cerebrovascular accident [None]
  - Myocardial infarction [None]
  - Weight decreased [None]
  - Gait disturbance [None]
  - Dizziness [None]
  - Cerebral thrombosis [None]
  - Cognitive disorder [None]

NARRATIVE: CASE EVENT DATE: 20240226
